FAERS Safety Report 10647531 (Version 2)
Quarter: 2014Q4

REPORT INFORMATION
  Report Type: Report from Study
  Country: US (occurrence: US)
  Receive Date: 20141211
  Receipt Date: 20141211
  Transmission Date: 20150529
  Serious: Yes (Hospitalization, Other)
  Sender: FDA-Public Use
  Company Number: US-GILEAD-2014-0122687

PATIENT
  Sex: Female
  Weight: 67.94 kg

DRUGS (4)
  1. BLINDED IDELALISIB [Suspect]
     Active Substance: IDELALISIB
     Indication: NON-HODGKIN^S LYMPHOMA UNSPECIFIED HISTOLOGY INDOLENT
     Dosage: UNK
     Route: 065
     Dates: start: 20141023, end: 20141110
  2. BLINDED RITUXIMAB [Suspect]
     Active Substance: RITUXIMAB
     Indication: NON-HODGKIN^S LYMPHOMA UNSPECIFIED HISTOLOGY INDOLENT
     Dosage: UNK
     Route: 065
     Dates: start: 20141023, end: 20141110
  3. ZOFRAN                             /00955302/ [Concomitant]
     Indication: NAUSEA
     Dosage: UNK
     Dates: start: 20141025
  4. PLACEBO [Suspect]
     Active Substance: UNSPECIFIED INGREDIENT
     Indication: NON-HODGKIN^S LYMPHOMA UNSPECIFIED HISTOLOGY INDOLENT
     Dosage: UNK
     Route: 065
     Dates: start: 20141023, end: 20141110

REACTIONS (3)
  - Alanine aminotransferase increased [Recovered/Resolved]
  - Syncope [Recovered/Resolved]
  - Aspartate aminotransferase increased [Recovered/Resolved]

NARRATIVE: CASE EVENT DATE: 20141110
